FAERS Safety Report 24075572 (Version 1)
Quarter: 2024Q3

REPORT INFORMATION
  Report Type: Spontaneous
  Country: CN (occurrence: CN)
  Receive Date: 20240710
  Receipt Date: 20240710
  Transmission Date: 20241017
  Serious: Yes (Other)
  Sender: BAYER
  Company Number: CN-BAYER-2024A099301

PATIENT
  Age: 56 Year
  Sex: Male

DRUGS (1)
  1. NEXAVAR [Suspect]
     Active Substance: SORAFENIB
     Indication: Hepatocellular carcinoma
     Dosage: 0.2 G, BID
     Route: 048
     Dates: start: 20240519, end: 20240701

REACTIONS (3)
  - Myelosuppression [Recovering/Resolving]
  - Pyrexia [None]
  - Off label use [None]

NARRATIVE: CASE EVENT DATE: 20240519
